FAERS Safety Report 20344972 (Version 2)
Quarter: 2023Q1

REPORT INFORMATION
  Report Type: Other
  Country: US (occurrence: None)
  Receive Date: 20220118
  Receipt Date: 20230109
  Transmission Date: 20230418
  Serious: Yes (Life-Threatening, Hospitalization)
  Sender: FDA-Public Use
  Company Number: US-ROCHE-2586148

PATIENT
  Age: 58 Year
  Sex: Male
  Weight: 88.076 kg

DRUGS (19)
  1. RITUXAN [Suspect]
     Active Substance: RITUXIMAB
     Indication: Granulomatosis with polyangiitis
     Dosage: FOR 1 MONTH ;ONGOING: NO
     Route: 042
     Dates: start: 201403, end: 2014
  2. RITUXAN [Suspect]
     Active Substance: RITUXIMAB
     Dosage: FOR 3 DOSES ;ONGOING: NO
     Route: 042
     Dates: start: 201704, end: 2017
  3. RITUXAN [Suspect]
     Active Substance: RITUXIMAB
     Dosage: ONE DOSE ;ONGOING: YES
     Route: 042
     Dates: start: 20200408
  4. RITUXAN [Suspect]
     Active Substance: RITUXIMAB
     Route: 042
  5. PREDNISONE [Concomitant]
     Active Substance: PREDNISONE
     Dosage: OVER A MONTH AND TAPERED TO 0 MG ;ONGOING: NO
     Route: 048
     Dates: start: 2014
  6. PREDNISONE [Concomitant]
     Active Substance: PREDNISONE
     Dosage: OVER A MONTH AND TAPERED TO 0 MG ;ONGOING: NO
     Route: 048
  7. PREDNISONE [Concomitant]
     Active Substance: PREDNISONE
     Dosage: PATIENT REPORTED INTRAVENOUS PREDNISONE ;ONGOING: NO
     Route: 042
     Dates: start: 2020
  8. PREDNISONE [Concomitant]
     Active Substance: PREDNISONE
     Dosage: NO TAPER ;ONGOING: YES
     Route: 048
  9. VALSARTAN [Concomitant]
     Active Substance: VALSARTAN
     Indication: Hypertension
     Route: 048
  10. TOBRAMYCIN AND DEXAMETHASONE [Concomitant]
     Active Substance: DEXAMETHASONE\TOBRAMYCIN
     Indication: Eye infection
     Dosage: BOTH EYES ;ONGOING: YES
     Route: 047
     Dates: start: 20200301
  11. CIPROFLOXACIN HYDROCHLORIDE;HYDROCORTISONE [Concomitant]
     Indication: Eye infection
     Dosage: YES
     Route: 047
  12. SOLU-MEDROL [Concomitant]
     Active Substance: METHYLPREDNISOLONE SODIUM SUCCINATE
     Route: 042
  13. BENADRYL [Concomitant]
     Active Substance: DIPHENHYDRAMINE HYDROCHLORIDE
     Dosage: 25-50 MG
     Route: 042
  14. AMLODIPINE [Concomitant]
     Active Substance: AMLODIPINE BESYLATE
     Indication: Hypertension
     Route: 048
     Dates: start: 2020
  15. ATORVASTATIN [Concomitant]
     Active Substance: ATORVASTATIN
     Indication: Blood cholesterol
     Route: 048
  16. LEXAPRO [Concomitant]
     Active Substance: ESCITALOPRAM OXALATE
     Indication: Depression
     Dates: start: 2020
  17. FLOMAX [Concomitant]
     Active Substance: TAMSULOSIN HYDROCHLORIDE
     Indication: Urine flow decreased
     Route: 048
     Dates: start: 2014
  18. FLOMAX [Concomitant]
     Active Substance: TAMSULOSIN HYDROCHLORIDE
     Route: 048
     Dates: start: 2020
  19. PLAVIX [Concomitant]
     Active Substance: CLOPIDOGREL BISULFATE
     Indication: Coronary arterial stent insertion
     Route: 048
     Dates: start: 2020

REACTIONS (27)
  - Arthralgia [Recovered/Resolved]
  - Biliary colic [Recovered/Resolved]
  - Granulomatosis with polyangiitis [Unknown]
  - Sepsis [Recovered/Resolved]
  - Pneumonia [Unknown]
  - Chest pain [Recovered/Resolved]
  - Hypertension [Not Recovered/Not Resolved]
  - Hypoproteinaemia [Unknown]
  - Bell^s palsy [Unknown]
  - Leukocytosis [Unknown]
  - Secondary thrombocytosis [Unknown]
  - Muscle tightness [Recovered/Resolved]
  - Gait inability [Recovered/Resolved]
  - Pain [Recovered/Resolved]
  - Epistaxis [Not Recovered/Not Resolved]
  - Therapy non-responder [Unknown]
  - Protein total increased [Unknown]
  - White blood cell count decreased [Unknown]
  - Coronary artery occlusion [Unknown]
  - Ulcer haemorrhage [Unknown]
  - Pain [Unknown]
  - Polyp [Unknown]
  - Helicobacter gastritis [Unknown]
  - Urine flow decreased [Unknown]
  - Depression [Unknown]
  - Off label use [Unknown]
  - Off label use [Unknown]

NARRATIVE: CASE EVENT DATE: 20140701
